FAERS Safety Report 4370098-8 (Version None)
Quarter: 2004Q2

REPORT INFORMATION
  Report Type: 
  Country: None (occurrence: None)
  Receive Date: 20040527
  Receipt Date: 20040514
  Transmission Date: 20050107
  Serious: Yes (Death, Hospitalization)
  Sender: FDA-Public Use
  Company Number: IT-JNJFOC-20040501514

PATIENT
  Age: 77 Year
  Sex: Male

DRUGS (5)
  1. DURAGESIC [Suspect]
     Indication: OSTEOARTHRITIS
     Dosage: 25 UG/HR, 1 IN 1 DAY, TRANSDERMAL
     Route: 062
     Dates: start: 20040419, end: 20040421
  2. COEFFERALGAN    (PANADEINE CO) [Concomitant]
  3. DELAPRIDE (DELAPRIDE) [Concomitant]
  4. TERAZOSIN (TERAZOSIN) [Concomitant]
  5. CELECOXIB (CELECOXIB) [Concomitant]

REACTIONS (4)
  - COMA [None]
  - CONFUSIONAL STATE [None]
  - OLIGURIA [None]
  - VOMITING [None]
